FAERS Safety Report 15153775 (Version 2)
Quarter: 2018Q3

REPORT INFORMATION
  Report Type: Spontaneous
  Country: US (occurrence: US)
  Receive Date: 20180717
  Receipt Date: 20180927
  Transmission Date: 20181010
  Serious: Yes (Other)
  Sender: FDA-Public Use
  Company Number: US-SA-2018SA192319

PATIENT
  Age: 42 Year
  Sex: Female
  Weight: 72.57 kg

DRUGS (3)
  1. TAXOTERE [Suspect]
     Active Substance: DOCETAXEL
     Indication: BREAST CANCER FEMALE
     Dosage: 116 UNK, UNK
     Route: 042
     Dates: start: 19990615, end: 19990615
  2. TAXOTERE [Suspect]
     Active Substance: DOCETAXEL
     Dosage: 116 MG
     Route: 042
     Dates: start: 19990705, end: 19990705
  3. ADRIAMYCIN [DOXORUBICIN HYDROCHLORIDE] [Concomitant]

REACTIONS (2)
  - Alopecia [Not Recovered/Not Resolved]
  - Psychological trauma [Unknown]

NARRATIVE: CASE EVENT DATE: 198706
